FAERS Safety Report 16103130 (Version 1)
Quarter: 2019Q1

REPORT INFORMATION
  Report Type: Report from Study
  Country: None (occurrence: DE)
  Receive Date: 20190322
  Receipt Date: 20190322
  Transmission Date: 20190418
  Serious: Yes (Hospitalization)
  Sender: FDA-Public Use
  Company Number: DE-ABBVIE-19K-062-2709350-00

PATIENT
  Sex: Male

DRUGS (8)
  1. HUMIRA [Suspect]
     Active Substance: ADALIMUMAB
     Indication: CROHN^S DISEASE
     Route: 058
     Dates: start: 2015
  2. CORTISONE [Suspect]
     Active Substance: CORTISONE\HYDROCORTISONE
     Route: 065
     Dates: start: 2019
  3. OCTENISEPT [Suspect]
     Active Substance: OCTENIDINE\PHENOXYETHANOL
     Indication: RASH GENERALISED
     Route: 065
  4. CORTISONE [Suspect]
     Active Substance: CORTISONE\HYDROCORTISONE
     Indication: PRODUCT USED FOR UNKNOWN INDICATION
     Route: 065
     Dates: start: 20190221, end: 2019
  5. BLOPRESS [Concomitant]
     Active Substance: CANDESARTAN CILEXETIL
     Indication: HYPERTENSION
  6. HUMIRA [Suspect]
     Active Substance: ADALIMUMAB
     Indication: CROHN^S DISEASE
     Route: 058
     Dates: end: 201901
  7. BELOC-ZOK COMP [Concomitant]
     Active Substance: HYDROCHLOROTHIAZIDE\METOPROLOL SUCCINATE
     Indication: HYPERTENSION
  8. OCTENISEPT [Suspect]
     Active Substance: OCTENIDINE\PHENOXYETHANOL
     Indication: RASH

REACTIONS (8)
  - Rash [Recovering/Resolving]
  - Skin fissures [Recovering/Resolving]
  - Dry skin [Not Recovered/Not Resolved]
  - Rash generalised [Recovering/Resolving]
  - Blood pressure increased [Recovering/Resolving]
  - Gait disturbance [Recovering/Resolving]
  - Immune system disorder [Not Recovered/Not Resolved]
  - Skin haemorrhage [Recovering/Resolving]

NARRATIVE: CASE EVENT DATE: 2015
